FAERS Safety Report 4651688-1 (Version None)
Quarter: 2005Q2

REPORT INFORMATION
  Report Type: 
  Country: None (occurrence: None)
  Receive Date: 20050502
  Receipt Date: 20050425
  Transmission Date: 20051028
  Serious: Yes (Other)
  Sender: FDA-Public Use
  Company Number: HQWYE141007FEB05

PATIENT
  Age: 37 Year
  Sex: Female
  Weight: 59.02 kg

DRUGS (4)
  1. ALESSE [Suspect]
     Indication: ORAL CONTRACEPTION
     Dosage: 1 TABLET 1X PER 1 DAY, ORAL
     Route: 048
     Dates: start: 19960101, end: 20050121
  2. ASPIRIN [Concomitant]
  3. PROZAC [Concomitant]
  4. VITAMIN B12 [Concomitant]

REACTIONS (2)
  - ANTIPHOSPHOLIPID SYNDROME [None]
  - RETINAL VASCULITIS [None]
